FAERS Safety Report 17173838 (Version 3)
Quarter: 2020Q3

REPORT INFORMATION
  Report Type: Spontaneous
  Country: US (occurrence: US)
  Receive Date: 20191219
  Receipt Date: 20200929
  Transmission Date: 20201102
  Serious: No
  Sender: FDA-Public Use
  Company Number: US-PFIZER INC-2019527254

PATIENT
  Age: 59 Year
  Sex: Female

DRUGS (1)
  1. PREMARIN [Suspect]
     Active Substance: ESTROGENS, CONJUGATED
     Indication: CYSTITIS
     Dosage: UNK

REACTIONS (4)
  - Product use in unapproved indication [Unknown]
  - Product prescribing error [Unknown]
  - Pain in extremity [Unknown]
  - Off label use [Unknown]
